FAERS Safety Report 5466514-0 (Version None)
Quarter: 2007Q3

REPORT INFORMATION
  Report Type: 
  Country: None (occurrence: None)
  Receive Date: 20070820
  Receipt Date: 20070608
  Transmission Date: 20080115
  Serious: No
  Sender: FDA-Public Use
  Company Number: WAES 0706USA01436

PATIENT
  Age: 69 Year
  Sex: Female

DRUGS (7)
  1. JANUVIA [Suspect]
     Indication: BLOOD GLUCOSE
     Dosage: 100 MG/DAILY/PO
     Route: 048
     Dates: start: 20070525
  2. COUMADIN [Concomitant]
  3. VYTORIN [Concomitant]
  4. ZANTAC [Concomitant]
  5. ZYRTEC [Concomitant]
  6. FUROSEMIDE [Concomitant]
  7. MECLIZINE [Concomitant]

REACTIONS (2)
  - DIARRHOEA [None]
  - RHINORRHOEA [None]
